FAERS Safety Report 24525822 (Version 1)
Quarter: 2024Q4

REPORT INFORMATION
  Report Type: Spontaneous
  Country: US (occurrence: US)
  Receive Date: 20241020
  Receipt Date: 20241020
  Transmission Date: 20250115
  Serious: No
  Sender: ADVANZ PHARMA
  Company Number: US-ADVANZ PHARMA-202410008333

PATIENT

DRUGS (2)
  1. HYDROXYCHLOROQUINE [Suspect]
     Active Substance: HYDROXYCHLOROQUINE
     Dosage: UNK (STOPPED)
  2. HYDROXYCHLOROQUINE [Suspect]
     Active Substance: HYDROXYCHLOROQUINE
     Dosage: UNK (RESTARTED AGAIN AS OF YESTERDAY)
     Dates: start: 20241003

REACTIONS (1)
  - Asthenia [Unknown]
